FAERS Safety Report 14197115 (Version 2)
Quarter: 2018Q2

REPORT INFORMATION
  Report Type: Spontaneous
  Country: IT (occurrence: IT)
  Receive Date: 20171116
  Receipt Date: 20180501
  Transmission Date: 20180711
  Serious: Yes (Hospitalization, Other)
  Sender: FDA-Public Use
  Company Number: IT-MYLANLABS-2017M1072105

PATIENT
  Age: 29 Year
  Sex: Male
  Weight: 75 kg

DRUGS (2)
  1. OKI [Suspect]
     Active Substance: KETOPROFEN LYSINE
     Indication: BACK PAIN
     Dosage: 160 MG, TOTAL
     Route: 048
     Dates: start: 20170606, end: 20170608
  2. BRUFEN 600 MG COMPRESSE RIVESTITE [Suspect]
     Active Substance: IBUPROFEN
     Indication: BACK PAIN
     Dosage: 600 MG, TOTAL
     Route: 048
     Dates: start: 20170606, end: 20170608

REACTIONS (4)
  - Petechiae [Recovered/Resolved]
  - Rhabdomyolysis [Recovered/Resolved]
  - Metabolic syndrome [Recovered/Resolved]
  - Acute kidney injury [Recovered/Resolved]

NARRATIVE: CASE EVENT DATE: 20170608
